FAERS Safety Report 21601027 (Version 1)
Quarter: 2022Q4

REPORT INFORMATION
  Report Type: Spontaneous
  Country: US (occurrence: US)
  Receive Date: 20221116
  Receipt Date: 20221116
  Transmission Date: 20230112
  Serious: No
  Sender: FDA-Public Use
  Company Number: US-JNJFOC-20221126942

PATIENT
  Age: 83 Year
  Sex: Male
  Weight: 96.702 kg

DRUGS (2)
  1. XARELTO [Suspect]
     Active Substance: RIVAROXABAN
     Indication: Product used for unknown indication
     Dosage: PRESCRIPTION NUMBER- RX-6566518
     Route: 048
     Dates: start: 2017
  2. XARELTO [Suspect]
     Active Substance: RIVAROXABAN
     Route: 048
     Dates: start: 202210

REACTIONS (3)
  - Body temperature fluctuation [Unknown]
  - Peripheral coldness [Unknown]
  - Eye irritation [Unknown]

NARRATIVE: CASE EVENT DATE: 20221001
